FAERS Safety Report 17441987 (Version 2)
Quarter: 2020Q1

REPORT INFORMATION
  Report Type: Spontaneous
  Country: US (occurrence: US)
  Receive Date: 20200220
  Receipt Date: 20200226
  Transmission Date: 20200409
  Serious: Yes (Hospitalization, Other)
  Sender: FDA-Public Use
  Company Number: US-SHIRE-US202000822

PATIENT
  Age: 70 Year
  Sex: Female
  Weight: 63.49 kg

DRUGS (6)
  1. VITAMINE C [Concomitant]
     Active Substance: ASCORBIC ACID
     Indication: PRODUCT USED FOR UNKNOWN INDICATION
  2. TOPAMAX [Concomitant]
     Active Substance: TOPIRAMATE
     Indication: PAIN IN EXTREMITY
  3. VITAMIN B [Concomitant]
     Active Substance: VITAMIN B
     Indication: PRODUCT USED FOR UNKNOWN INDICATION
  4. ZINC. [Concomitant]
     Active Substance: ZINC
     Indication: PRODUCT USED FOR UNKNOWN INDICATION
  5. CARBATROL [Suspect]
     Active Substance: CARBAMAZEPINE
     Indication: GENERALISED TONIC-CLONIC SEIZURE
     Dosage: 300 MILLIGRAM, 4X/DAY:QID
     Route: 048
     Dates: start: 1980
  6. CARBATROL [Suspect]
     Active Substance: CARBAMAZEPINE
     Dosage: UNK
     Route: 065
     Dates: start: 20191213

REACTIONS (12)
  - Spinal fracture [Recovered/Resolved]
  - Victim of sexual abuse [Recovered/Resolved]
  - Back injury [Recovered/Resolved]
  - Cerebrovascular accident [Recovered/Resolved]
  - Parosmia [Unknown]
  - Unevaluable event [Unknown]
  - Inappropriate schedule of product administration [Unknown]
  - Road traffic accident [Recovered/Resolved]
  - Lower limb fracture [Recovered/Resolved]
  - Epistaxis [Unknown]
  - Adverse drug reaction [Recovered/Resolved]
  - Vomiting [Unknown]

NARRATIVE: CASE EVENT DATE: 1998
